FAERS Safety Report 5616604-4 (Version None)
Quarter: 2008Q1

REPORT INFORMATION
  Report Type: 
  Country: None (occurrence: None)
  Receive Date: 20080207
  Receipt Date: 20070905
  Transmission Date: 20080703
  Serious: No
  Sender: FDA-Public Use
  Company Number: A0680581A

PATIENT
  Sex: Female

DRUGS (1)
  1. PAXIL CR [Suspect]

REACTIONS (5)
  - DISCOMFORT [None]
  - DRUG INEFFECTIVE [None]
  - FEELING HOT [None]
  - OFF LABEL USE [None]
  - THERAPEUTIC RESPONSE UNEXPECTED [None]
